FAERS Safety Report 24524862 (Version 1)
Quarter: 2024Q4

REPORT INFORMATION
  Report Type: Spontaneous
  Country: US (occurrence: US)
  Receive Date: 20241019
  Receipt Date: 20241019
  Transmission Date: 20250115
  Serious: No
  Sender: FDC LIMITED
  Company Number: US-FDC-2024USSPO00745

PATIENT
  Age: 62 Year
  Sex: Female
  Weight: 79.3 kg

DRUGS (2)
  1. TIMOLOL MALEATE [Suspect]
     Active Substance: TIMOLOL MALEATE
     Indication: Glaucoma
     Route: 047
     Dates: start: 2024, end: 20240916
  2. TIMOLOL MALEATE [Suspect]
     Active Substance: TIMOLOL MALEATE

REACTIONS (3)
  - Vision blurred [Unknown]
  - Foreign body sensation in eyes [Unknown]
  - Recalled product administered [Unknown]

NARRATIVE: CASE EVENT DATE: 20240101
